FAERS Safety Report 6133778-X (Version None)
Quarter: 2009Q1

REPORT INFORMATION
  Report Type: 
  Country: None (occurrence: None)
  Receive Date: 20090326
  Receipt Date: 20090317
  Transmission Date: 20090719
  Serious: Yes (Life-Threatening, Hospitalization, Other)
  Sender: FDA-Public Use
  Company Number: IT-PFIZER INC-2008042969

PATIENT

DRUGS (1)
  1. AROMASIN [Suspect]
     Indication: BREAST CANCER
     Dosage: DAILY
     Route: 048
     Dates: start: 20071222, end: 20080321

REACTIONS (5)
  - DEEP VEIN THROMBOSIS [None]
  - DERMATOMYOSITIS [None]
  - ERYTHEMA [None]
  - PARAESTHESIA [None]
  - URTICARIA [None]
